FAERS Safety Report 11058728 (Version 1)
Quarter: 2015Q2

REPORT INFORMATION
  Report Type: Spontaneous
  Country: BR (occurrence: BR)
  Receive Date: 20150423
  Receipt Date: 20150423
  Transmission Date: 20150821
  Serious: Yes (Other)
  Sender: FDA-Public Use
  Company Number: BR-ELI_LILLY_AND_COMPANY-BR201504004788

PATIENT
  Sex: Female

DRUGS (9)
  1. TRIMETAZIDINE [Concomitant]
     Active Substance: TRIMETAZIDINE
     Dosage: 1 DF, BID
     Route: 065
  2. VALSARTANA [Concomitant]
     Dosage: 1 DF, UNK
     Route: 065
  3. ASPIRIN. [Concomitant]
     Active Substance: ASPIRIN
     Dosage: UNK, UNKNOWN
     Route: 065
  4. SPIRONOLACTONE. [Concomitant]
     Active Substance: SPIRONOLACTONE
     Dosage: 1 UNK, EACH MORNING
     Route: 065
  5. HUMULIN N [Suspect]
     Active Substance: INSULIN HUMAN
     Indication: DIABETES MELLITUS
     Dosage: 15 IU, BID
     Route: 058
     Dates: start: 2012, end: 2014
  6. HUMULIN R [Suspect]
     Active Substance: INSULIN HUMAN
     Indication: DIABETES MELLITUS
     Dosage: 3 IU, TID
     Route: 058
     Dates: start: 2012, end: 2014
  7. BRILINTA [Concomitant]
     Active Substance: TICAGRELOR
     Dosage: UNK, UNKNOWN
     Route: 065
  8. CARVEDILOL. [Concomitant]
     Active Substance: CARVEDILOL
     Dosage: 1 DF, BID
     Route: 065
  9. SUSTRATE [Concomitant]
     Active Substance: PROPATYL NITRATE
     Dosage: UNK, UNKNOWN
     Route: 065

REACTIONS (1)
  - Cataract [Recovered/Resolved]
